FAERS Safety Report 24216659 (Version 1)
Quarter: 2024Q3

REPORT INFORMATION
  Report Type: Report from Study
  Country: US (occurrence: None)
  Receive Date: 20240816
  Receipt Date: 20240816
  Transmission Date: 20241017
  Serious: Yes (Life-Threatening)
  Sender: ASTRAZENECA
  Company Number: 2024A184741

PATIENT
  Sex: Female

DRUGS (14)
  1. TEZSPIRE [Suspect]
     Active Substance: TEZEPELUMAB-EKKO
  2. FLONASE [Concomitant]
     Active Substance: FLUTICASONE PROPIONATE
     Dosage: 50 MCG/ACTUATION
     Dates: start: 20211213
  3. ALBUTEROL SULF HFA [Concomitant]
     Dosage: 90 MCG INH , 2 SPRAYS EACH NOSTRIL, 1-2 PUFFS INHALED EVERY 4-6 HOURS AS NEEDED
     Dates: start: 20220411
  4. SINGULAIR [Concomitant]
     Active Substance: MONTELUKAST SODIUM
     Route: 048
     Dates: start: 20220411
  5. XYZAL [Concomitant]
     Active Substance: LEVOCETIRIZINE DIHYDROCHLORIDE
     Route: 048
     Dates: start: 20220411
  6. ELLIPTA [Concomitant]
     Dosage: 100-25 MAG INH MAG/DOSE, 1 PUFF INHALED ONCE A DAY
     Route: 055
     Dates: start: 20221201
  7. AMLODIPINE BESYLATE [Concomitant]
     Active Substance: AMLODIPINE BESYLATE
     Dates: start: 20211212
  8. ATORVASTATIN [Concomitant]
     Active Substance: ATORVASTATIN
     Dates: start: 20211212
  9. GLIPIDDE [Concomitant]
     Dates: start: 20211212
  10. LOSARTAN POTASSIUM [Concomitant]
     Active Substance: LOSARTAN POTASSIUM
     Dates: start: 20211212
  11. METFORMIN HEL [Concomitant]
     Dates: start: 20211212
  12. WARFARIN SODIUM [Concomitant]
     Active Substance: WARFARIN SODIUM
     Dates: start: 20211212
  13. WIXELA INHUB [Concomitant]
     Active Substance: FLUTICASONE PROPIONATE\SALMETEROL XINAFOATE
     Dosage: 100-50 INHUB MEG/DOSE, 1 INHALATION TWICE A DAY 7
     Dates: start: 20221209
  14. EPIPEN [Concomitant]
     Active Substance: EPINEPHRINE
     Dosage: 2-PAK 0.3 MG AUTO-INJET MG/0.3 MI
     Dates: start: 20240327

REACTIONS (1)
  - Anaphylactic reaction [Unknown]
